FAERS Safety Report 7674997-0 (Version None)
Quarter: 2011Q3

REPORT INFORMATION
  Report Type: 
  Country: None (occurrence: None)
  Receive Date: 20110810
  Receipt Date: 20100301
  Transmission Date: 20111222
  Serious: Yes (Hospitalization, Other)
  Sender: FDA-Public Use
  Company Number: US-BAYER-201015342NA

PATIENT
  Sex: Female

DRUGS (1)
  1. YAZ [Suspect]
     Indication: CONTRACEPTION
     Dosage: 3MG/0.02MG
     Route: 048
     Dates: start: 20100101, end: 20100227

REACTIONS (9)
  - STOMATITIS [None]
  - GINGIVITIS [None]
  - SWOLLEN TONGUE [None]
  - APHAGIA [None]
  - DYSGEUSIA [None]
  - OROPHARYNGEAL PAIN [None]
  - GINGIVAL PAIN [None]
  - AGEUSIA [None]
  - ORAL PAIN [None]
